FAERS Safety Report 22273750 (Version 1)
Quarter: 2023Q2

REPORT INFORMATION
  Report Type: Spontaneous
  Country: CN (occurrence: CN)
  Receive Date: 20230502
  Receipt Date: 20230502
  Transmission Date: 20230721
  Serious: Yes (Other)
  Sender: FDA-Public Use
  Company Number: CN-PFIZER INC-PV202300077136

PATIENT
  Age: 75 Year
  Sex: Male
  Weight: 67 kg

DRUGS (4)
  1. METHYLPREDNISOLONE SODIUM SUCCINATE [Suspect]
     Active Substance: METHYLPREDNISOLONE SODIUM SUCCINATE
     Indication: Antiinflammatory therapy
     Dosage: 40 MG, 1X/DAY
     Route: 041
     Dates: start: 20230305
  2. CEFOPERAZONE SODIUM\SULBACTAM SODIUM [Concomitant]
     Active Substance: CEFOPERAZONE SODIUM\SULBACTAM SODIUM
     Indication: Anti-infective therapy
     Dosage: 2 G, 3X/DAY
     Route: 041
     Dates: start: 20230305, end: 20230316
  3. SODIUM CHLORIDE [Concomitant]
     Active Substance: SODIUM CHLORIDE
     Indication: Vehicle solution use
     Dosage: 100 ML
     Route: 041
     Dates: start: 20230305
  4. SODIUM CHLORIDE [Concomitant]
     Active Substance: SODIUM CHLORIDE
     Dosage: 50 ML, 3X/DAY
     Route: 041
     Dates: start: 20230305

REACTIONS (2)
  - Agitation [Recovering/Resolving]
  - Initial insomnia [Recovering/Resolving]

NARRATIVE: CASE EVENT DATE: 20230305
